FAERS Safety Report 6411949-2 (Version None)
Quarter: 2009Q4

REPORT INFORMATION
  Report Type: 
  Country: None (occurrence: None)
  Receive Date: 20091023
  Receipt Date: 20091015
  Transmission Date: 20100525
  Serious: Yes (Hospitalization)
  Sender: FDA-Public Use
  Company Number: BR-ABBOTT-09P-020-0603194-00

PATIENT
  Sex: Male
  Weight: 82 kg

DRUGS (2)
  1. HUMIRA [Suspect]
     Indication: RHEUMATOID ARTHRITIS
     Route: 058
     Dates: start: 20090301
  2. UNKNOWN [Suspect]
     Indication: BLOOD PRESSURE

REACTIONS (4)
  - BLOOD PRESSURE DECREASED [None]
  - FALL [None]
  - HEAD INJURY [None]
  - SYNCOPE [None]
